FAERS Safety Report 18305879 (Version 1)
Quarter: 2020Q3

REPORT INFORMATION
  Report Type: Spontaneous
  Country: US (occurrence: US)
  Receive Date: 20200923
  Receipt Date: 20200923
  Transmission Date: 20201103
  Serious: Yes (Other)
  Sender: FDA-Public Use
  Company Number: US-ANAZAOHEALTH CORPORATION-2091090

PATIENT
  Age: 65 Year
  Sex: Female
  Weight: 65.46 kg

DRUGS (3)
  1. TESTOSTERONE. [Concomitant]
     Active Substance: TESTOSTERONE
     Route: 058
     Dates: start: 20200409
  2. TESTOSTERONE 25 MG [Suspect]
     Active Substance: TESTOSTERONE
     Route: 058
     Dates: start: 20200409
  3. ESTRADIOL. [Concomitant]
     Active Substance: ESTRADIOL
     Route: 058
     Dates: start: 20200409

REACTIONS (1)
  - Breast cancer [Unknown]

NARRATIVE: CASE EVENT DATE: 20200901
